FAERS Safety Report 4408733-8 (Version None)
Quarter: 2004Q3

REPORT INFORMATION
  Report Type: 
  Country: None (occurrence: None)
  Receive Date: 20040727
  Receipt Date: 20040623
  Transmission Date: 20050211
  Serious: Yes (Death, Hospitalization)
  Sender: FDA-Public Use
  Company Number: 200411403DE

PATIENT
  Age: 41 Year
  Sex: Female
  Weight: 73 kg

DRUGS (6)
  1. TAXOTERE [Suspect]
     Indication: BREAST CANCER
     Dates: start: 20040607, end: 20040607
  2. EPIRUBICIN [Concomitant]
  3. CYCLOPHOSPHAMIDE [Concomitant]
  4. DEXAMETHASONE [Concomitant]
     Route: 042
     Dates: start: 20040606
  5. DOLASETRON [Concomitant]
  6. LORAZEPAM [Concomitant]

REACTIONS (4)
  - CARDIAC ARREST [None]
  - PNEUMONIA [None]
  - RESPIRATORY FAILURE [None]
  - SEPTIC SHOCK [None]
